FAERS Safety Report 8487956-5 (Version None)
Quarter: 2012Q3

REPORT INFORMATION
  Report Type: 
  Country: None (occurrence: None)
  Receive Date: 20120705
  Receipt Date: 20120626
  Transmission Date: 20120928
  Serious: Yes (Hospitalization)
  Sender: FDA-Public Use
  Company Number: US-BAYER-2012-062819

PATIENT
  Age: 22 Year
  Sex: Female
  Weight: 75 kg

DRUGS (3)
  1. TORADOL [Concomitant]
  2. YASMIN [Suspect]
     Indication: CONTRACEPTION
     Dosage: UNK
     Dates: start: 20030805, end: 20060724
  3. HYDROCODONE BITARTRATE + ACETAMINOPHEN [Concomitant]

REACTIONS (6)
  - CHEST PAIN [None]
  - INJURY [None]
  - PAIN [None]
  - DYSPNOEA [None]
  - HAEMOPTYSIS [None]
  - PULMONARY EMBOLISM [None]
